FAERS Safety Report 6970703-3 (Version None)
Quarter: 2010Q3

REPORT INFORMATION
  Report Type: 
  Country: None (occurrence: None)
  Receive Date: 20100908
  Receipt Date: 20100830
  Transmission Date: 20110219
  Serious: Yes (Other)
  Sender: FDA-Public Use
  Company Number: US-JNJFOC-20100900996

PATIENT
  Sex: Female
  Weight: 66.68 kg

DRUGS (4)
  1. DURAGESIC-100 [Suspect]
     Indication: PAIN
     Route: 062
  2. PREMARIN [Concomitant]
     Indication: HORMONE REPLACEMENT THERAPY
     Route: 048
  3. OXYCODONE HCL [Concomitant]
     Indication: PAIN
     Route: 048
  4. DEXILANT [Concomitant]
     Indication: GASTRIC DISORDER
     Route: 048

REACTIONS (9)
  - BLOOD POTASSIUM DECREASED [None]
  - DRUG DOSE OMISSION [None]
  - KIDNEY INFECTION [None]
  - PRODUCT ADHESION ISSUE [None]
  - PYREXIA [None]
  - RENAL CYST [None]
  - SINUS CONGESTION [None]
  - WITHDRAWAL SYNDROME [None]
  - WRONG TECHNIQUE IN DRUG USAGE PROCESS [None]
